FAERS Safety Report 11595770 (Version 2)
Quarter: 2015Q4

REPORT INFORMATION
  Report Type: Spontaneous
  Country: GR (occurrence: GR)
  Receive Date: 20151006
  Receipt Date: 20151006
  Transmission Date: 20160304
  Serious: Yes (Other)
  Sender: FDA-Public Use
  Company Number: PHHY2015GR116141

PATIENT
  Age: 73 Year
  Sex: Male

DRUGS (4)
  1. CICLOSPORIN [Suspect]
     Active Substance: CYCLOSPORINE
     Indication: PSORIASIS
     Route: 065
  2. ACITRETIN. [Suspect]
     Active Substance: ACITRETIN
     Indication: PSORIASIS
     Route: 065
  3. ACITRETIN. [Suspect]
     Active Substance: ACITRETIN
     Dosage: 25 MG, QD
     Route: 065
  4. INFLIXIMAB [Suspect]
     Active Substance: INFLIXIMAB
     Indication: PSORIASIS
     Route: 065

REACTIONS (4)
  - Skin plaque [Unknown]
  - Psoriatic arthropathy [Unknown]
  - Mycosis fungoides stage I [Recovering/Resolving]
  - Psoriasis [Unknown]
